FAERS Safety Report 5924307-1 (Version None)
Quarter: 2008Q4

REPORT INFORMATION
  Report Type: 
  Country: None (occurrence: None)
  Receive Date: 20081020
  Receipt Date: 20081009
  Transmission Date: 20090506
  Serious: Yes (Other)
  Sender: FDA-Public Use
  Company Number: PL-ROCHE-585229

PATIENT
  Age: 52 Year
  Sex: Male

DRUGS (21)
  1. CLONAZEPAM [Suspect]
     Indication: DRUG USE FOR UNKNOWN INDICATION
     Route: 065
  2. MOCLOBEMIDE [Suspect]
     Indication: ANTIDEPRESSANT THERAPY
     Route: 065
  3. PERAZINE [Concomitant]
  4. PERAZINE [Concomitant]
  5. RISPERIDONE [Concomitant]
  6. FLUPHENAZINE [Concomitant]
  7. THIORIDAZINE [Concomitant]
  8. OLANZAPINE [Concomitant]
  9. SULPIRIDE [Concomitant]
  10. HALOPERIDOL [Concomitant]
  11. LEVOMEPROMAZINE [Concomitant]
  12. MIANSERIN [Concomitant]
     Indication: ANTIDEPRESSANT THERAPY
  13. MIANSERIN [Concomitant]
  14. FLUOXETINE [Concomitant]
     Indication: ANTIDEPRESSANT THERAPY
  15. VENLAFAXINE HCL [Concomitant]
     Indication: ANTIDEPRESSANT THERAPY
  16. IMIPRAMINE [Concomitant]
     Indication: ANTIDEPRESSANT THERAPY
  17. BUSPIRONE HCL [Concomitant]
     Indication: AFFECTIVE DISORDER
  18. LITHIUM [Concomitant]
     Indication: AFFECTIVE DISORDER
     Dosage: OVER A NUMBER OF YEARS
  19. PROMETHAZINE [Concomitant]
  20. HYDROXYZINE [Concomitant]
  21. LORAZEPAM [Concomitant]

REACTIONS (2)
  - PSYCHOTIC DISORDER [None]
  - TREATMENT FAILURE [None]
